FAERS Safety Report 10021065 (Version 1)
Quarter: 2014Q1

REPORT INFORMATION
  Report Type: Other
  Country: GB (occurrence: GB)
  Receive Date: 20140319
  Receipt Date: 20140319
  Transmission Date: 20141002
  Serious: Yes (Disabling)
  Sender: FDA-Public Use
  Company Number: GB-SUN PHARMACEUTICAL INDUSTRIES LTD-2014SUN00549

PATIENT
  Age: 40 Year
  Sex: Male
  Weight: 99.78 kg

DRUGS (3)
  1. VENLAFAXINE HYDROCHLORIDE 37.5MG TABLET [Suspect]
     Indication: DEPRESSION
     Dosage: 225 MG, QD
     Route: 048
  2. LEMSIP [Concomitant]
  3. PARACETAMOL [Concomitant]

REACTIONS (3)
  - Night blindness [Not Recovered/Not Resolved]
  - Photophobia [Not Recovered/Not Resolved]
  - Memory impairment [Not Recovered/Not Resolved]
